FAERS Safety Report 8952582 (Version 1)
Quarter: 2012Q4

REPORT INFORMATION
  Report Type: 
  Country: NO (occurrence: NO)
  Receive Date: 20121205
  Receipt Date: 20121205
  Transmission Date: 20130627
  Serious: Yes (Hospitalization)
  Sender: FDA-Public Use
  Company Number: NO-ASTRAZENECA-2012SE90876

PATIENT
  Age: 35 Year
  Sex: Female

DRUGS (1)
  1. XYLOCAIN [Suspect]
     Indication: LOCAL ANAESTHESIA
     Route: 051
     Dates: start: 201202, end: 201202

REACTIONS (3)
  - Hepatitis [Recovered/Resolved]
  - General physical health deterioration [Recovered/Resolved]
  - Alanine aminotransferase increased [Recovered/Resolved]
